FAERS Safety Report 4407144-9 (Version None)
Quarter: 2004Q3

REPORT INFORMATION
  Report Type: 
  Country: None (occurrence: None)
  Receive Date: 20040723
  Receipt Date: 20040723
  Transmission Date: 20050211
  Serious: Yes (Other)
  Sender: FDA-Public Use
  Company Number: None

PATIENT
  Age: 82 Year
  Sex: Male
  Weight: 72.7 kg

DRUGS (11)
  1. HYDROCHLOROTHIAZIDE [Suspect]
  2. HYDROCORTISONE [Concomitant]
  3. LORATADINE [Concomitant]
  4. MILK OF MAGNESIA TAB [Concomitant]
  5. BISACODYL [Concomitant]
  6. TRIFLUOPERAZINE HCL [Concomitant]
  7. POTASSIUM CHLORIDE [Concomitant]
  8. PHENYTOIN ER [Concomitant]
  9. LEVOTHYROXINE SODIUM [Concomitant]
  10. BENZTROPINE MESYLATE [Concomitant]
  11. HYDROCHLOROTHIAZIDE [Concomitant]

REACTIONS (1)
  - RASH [None]
